FAERS Safety Report 11154884 (Version 2)
Quarter: 2015Q3

REPORT INFORMATION
  Report Type: Spontaneous
  Country: US (occurrence: US)
  Receive Date: 20150602
  Receipt Date: 20150822
  Transmission Date: 20151125
  Serious: No
  Sender: FDA-Public Use
  Company Number: US-009507513-1505USA001696

PATIENT
  Sex: Female
  Weight: 71.2 kg

DRUGS (1)
  1. NEXPLANON [Suspect]
     Active Substance: ETONOGESTREL
     Indication: CONTRACEPTION
     Dosage: UNK
     Route: 059
     Dates: end: 20150210

REACTIONS (5)
  - Menstruation delayed [Not Recovered/Not Resolved]
  - Weight increased [Not Recovered/Not Resolved]
  - Stress [Unknown]
  - Mood altered [Not Recovered/Not Resolved]
  - Hair growth abnormal [Not Recovered/Not Resolved]
